FAERS Safety Report 5310781-0 (Version None)
Quarter: 2007Q2

REPORT INFORMATION
  Report Type: 
  Country: None (occurrence: None)
  Receive Date: 20070428
  Receipt Date: 20070416
  Transmission Date: 20071010
  Serious: Yes (Other)
  Sender: FDA-Public Use
  Company Number: AT-PFIZER INC-2007022712

PATIENT
  Sex: Male
  Weight: 76 kg

DRUGS (2)
  1. LYRICA [Suspect]
     Indication: TRIGEMINAL NEURALGIA
     Dosage: DAILY DOSE:150MG
     Route: 048
     Dates: start: 20070315, end: 20070416
  2. PAROXETINE [Suspect]
     Indication: TRIGEMINAL NEURALGIA
     Dosage: DAILY DOSE:20MG

REACTIONS (5)
  - FATIGUE [None]
  - MEMORY IMPAIRMENT [None]
  - RASH [None]
  - RASH PRURITIC [None]
  - RESTLESSNESS [None]
